FAERS Safety Report 15081880 (Version 1)
Quarter: 2018Q2

REPORT INFORMATION
  Report Type: Spontaneous
  Country: FR (occurrence: FR)
  Receive Date: 20180628
  Receipt Date: 20180628
  Transmission Date: 20180711
  Serious: Yes (Other)
  Sender: FDA-Public Use
  Company Number: FR-SUN PHARMACEUTICAL INDUSTRIES LTD-2018RR-176828

PATIENT
  Age: 44 Year
  Sex: Male

DRUGS (9)
  1. GEMCITABINE [Suspect]
     Active Substance: GEMCITABINE\GEMCITABINE HYDROCHLORIDE
     Indication: PANCREATIC NEOPLASM
     Dosage: 1000 MG/M2, ON DAYS 1,8 AND 15 EVERY 28 DAYS, THREE CYCLES
     Route: 065
  2. GEMCITABINE [Suspect]
     Active Substance: GEMCITABINE\GEMCITABINE HYDROCHLORIDE
     Dosage: UNK
     Route: 065
  3. IRINOTECAN [Suspect]
     Active Substance: IRINOTECAN
     Indication: PANCREATIC NEOPLASM
     Dosage: 90 MG/M2, FOUR CYCLES
     Route: 065
  4. NAB-PACLITAXEL [Suspect]
     Active Substance: PACLITAXEL
     Dosage: UNK
     Route: 065
  5. OXALIPLATIN. [Suspect]
     Active Substance: OXALIPLATIN
     Indication: PANCREATIC NEOPLASM
     Dosage: 85 MG/M2, FOUR CYCLES
     Route: 065
  6. LEUCOVORIN. [Suspect]
     Active Substance: LEUCOVORIN
     Indication: PANCREATIC NEOPLASM
     Dosage: 400 MG/M2, FOUR CYCLES
     Route: 065
  7. 5-FLUOROURACIL [Suspect]
     Active Substance: FLUOROURACIL
     Indication: PANCREATIC NEOPLASM
     Dosage: 400 MG/M2, FOUR CYCLES
     Route: 040
  8. 5-FLUOROURACIL [Suspect]
     Active Substance: FLUOROURACIL
     Dosage: 2400 MG/M2, FOUR CYCLES
     Route: 042
  9. NAB-PACLITAXEL [Suspect]
     Active Substance: PACLITAXEL
     Indication: PANCREATIC NEOPLASM
     Dosage: 125 MG/M2, ON DAYS 1,8 AND 15 EVERY 28 DAYS, THREE CYCLES
     Route: 065

REACTIONS (2)
  - Drug effect incomplete [Unknown]
  - Disease recurrence [Unknown]
